FAERS Safety Report 4530368-7 (Version None)
Quarter: 2004Q4

REPORT INFORMATION
  Report Type: 
  Country: None (occurrence: None)
  Receive Date: 20041215
  Receipt Date: 20041129
  Transmission Date: 20050328
  Serious: Yes (Hospitalization)
  Sender: FDA-Public Use
  Company Number: DSA_25464_2004

PATIENT
  Age: 65 Year
  Sex: Male

DRUGS (1)
  1. ENALAPRIL MALEATE AND HYDROCHLOROTHIAZIDE [Suspect]
     Indication: HYPERTENSION
     Dosage: 1 TAB Q DAY PO
     Route: 048
     Dates: end: 20030515

REACTIONS (3)
  - DIPLOPIA [None]
  - HYPOKALAEMIA [None]
  - PARAESTHESIA [None]
